FAERS Safety Report 18998751 (Version 1)
Quarter: 2021Q1

REPORT INFORMATION
  Report Type: Spontaneous
  Country: US (occurrence: US)
  Receive Date: 20210312
  Receipt Date: 20210312
  Transmission Date: 20210420
  Serious: Yes (Life-Threatening, Hospitalization, Other)
  Sender: FDA-Public Use
  Company Number: US-JNJFOC-20190906048

PATIENT
  Age: 26 Year
  Sex: Female

DRUGS (2)
  1. IMODIUM [Suspect]
     Active Substance: LOPERAMIDE HYDROCHLORIDE
     Indication: PRODUCT USED FOR UNKNOWN INDICATION
     Dosage: EXCESSIVE LOPERAMIDE CONSUMPTION (80?120 MG/DAY)
     Route: 065
  2. IMODIUM [Suspect]
     Active Substance: LOPERAMIDE HYDROCHLORIDE
     Dosage: EXCESSIVE LOPERAMIDE CONSUMPTION (80?120 MG/DAY)
     Route: 065

REACTIONS (2)
  - Cardiac arrest [Recovered/Resolved]
  - Intentional overdose [Recovered/Resolved]
